FAERS Safety Report 6509705-X (Version None)
Quarter: 2009Q4

REPORT INFORMATION
  Report Type: 
  Country: None (occurrence: None)
  Receive Date: 20091222
  Receipt Date: 20091215
  Transmission Date: 20100525
  Serious: Yes (Hospitalization, Other)
  Sender: FDA-Public Use
  Company Number: US-BAYER-200942814NA

PATIENT
  Age: 19 Year
  Sex: Female
  Weight: 64 kg

DRUGS (1)
  1. YAZ [Suspect]
     Indication: MENORRHAGIA
     Dates: start: 20080901, end: 20080101

REACTIONS (4)
  - EPILEPSY [None]
  - GRAND MAL CONVULSION [None]
  - SOMNOLENCE [None]
  - VITAMIN B12 DECREASED [None]
